FAERS Safety Report 21064668 (Version 1)
Quarter: 2022Q3

REPORT INFORMATION
  Report Type: Spontaneous
  Country: US (occurrence: None)
  Receive Date: 20220710
  Receipt Date: 20220710
  Transmission Date: 20221027
  Serious: No
  Sender: FDA-Public Use
  Company Number: None

PATIENT
  Age: 63 Year
  Sex: Male
  Weight: 76.5 kg

DRUGS (4)
  1. MESALAMINE [Suspect]
     Active Substance: MESALAMINE
     Indication: Colitis
     Dosage: OTHER FREQUENCY : 2 CAPS 3 TIMES PD;?
     Route: 048
     Dates: start: 20210824, end: 20210826
  2. CLONAZEPAM [Concomitant]
     Active Substance: CLONAZEPAM
  3. ZOLPIDEM [Concomitant]
  4. WAL-ACT ANTIHISTAMINE [Concomitant]

REACTIONS (5)
  - Product substitution issue [None]
  - Dyspepsia [None]
  - Abdominal discomfort [None]
  - Product availability issue [None]
  - Suspected product quality issue [None]

NARRATIVE: CASE EVENT DATE: 20210824
